FAERS Safety Report 5753002-7 (Version None)
Quarter: 2008Q2

REPORT INFORMATION
  Report Type: 
  Country: None (occurrence: None)
  Receive Date: 20080527
  Receipt Date: 20080512
  Transmission Date: 20081010
  Serious: Yes (Other)
  Sender: FDA-Public Use
  Company Number: 2008AL004803

PATIENT
  Age: 79 Year
  Sex: Male

DRUGS (10)
  1. FEVERALL [Suspect]
     Dosage: QID; PO
     Route: 048
     Dates: start: 20010501
  2. LANSOPRAZOLE [Concomitant]
  3. TAMSULOSIN HCL [Concomitant]
  4. ATORVASTATIN [Concomitant]
  5. VALSARTAN [Concomitant]
  6. FERROUS SULFATE TAB [Concomitant]
  7. VENTOLIN [Concomitant]
  8. HYDROXOCOBALAMIN [Concomitant]
  9. EPOETIN BETA [Concomitant]
  10. ASPIRIN [Concomitant]

REACTIONS (1)
  - IDIOPATHIC PULMONARY FIBROSIS [None]
